FAERS Safety Report 23034628 (Version 1)
Quarter: 2023Q4

REPORT INFORMATION
  Report Type: Spontaneous
  Country: US (occurrence: US)
  Receive Date: 20231005
  Receipt Date: 20231005
  Transmission Date: 20240110
  Serious: Yes (Hospitalization)
  Sender: FDA-Public Use
  Company Number: US-MYLANLABS-2023M1103546

PATIENT
  Age: 69 Year
  Sex: Male

DRUGS (2)
  1. POTASSIUM CHLORIDE [Suspect]
     Active Substance: POTASSIUM CHLORIDE
     Indication: Supplementation therapy
     Dosage: UNK, HE RECEIVED IV POTASSIUM-CHLORIDE 40 MEQ/100 ML INFUSED WITH CENTRAL VENOUS......
     Route: 042
  2. POTASSIUM CHLORIDE [Suspect]
     Active Substance: POTASSIUM CHLORIDE
     Indication: Blood potassium decreased
     Dosage: UNK, TREATMENT WITH POTASSIUM-CHLORIDE DRIP WAS RESTARTED
     Route: 042

REACTIONS (2)
  - Phlebitis [Recovered/Resolved]
  - Chest pain [Recovered/Resolved]
